FAERS Safety Report 4924038-0 (Version None)
Quarter: 2006Q1

REPORT INFORMATION
  Report Type: 
  Country: None (occurrence: None)
  Receive Date: 20060227
  Receipt Date: 20060215
  Transmission Date: 20060701
  Serious: Yes (Other)
  Sender: FDA-Public Use
  Company Number: US-BRISTOL-MYERS SQUIBB COMPANY-13284955

PATIENT
  Age: 55 Year
  Sex: Male
  Weight: 71 kg

DRUGS (8)
  1. ATAZANAVIR [Suspect]
     Route: 048
     Dates: start: 20060119, end: 20060201
  2. RITONAVIR [Suspect]
     Route: 048
     Dates: start: 20060119
  3. BLINDED: EPZICOM [Suspect]
     Route: 048
     Dates: start: 20060119
  4. BLINDED: TRUVADA [Suspect]
     Route: 048
     Dates: start: 20060119
  5. BLINDED: PLACEBO [Suspect]
     Route: 048
  6. PREVACID [Concomitant]
     Indication: GASTROOESOPHAGEAL REFLUX DISEASE
     Dates: end: 20060114
  7. ZANTAC [Concomitant]
     Dosage: EVERY HOUR OF SLEEP
  8. SPIRIVA [Concomitant]
     Route: 055

REACTIONS (1)
  - GASTROOESOPHAGEAL REFLUX DISEASE [None]
